FAERS Safety Report 6278676-6 (Version None)
Quarter: 2009Q3

REPORT INFORMATION
  Report Type: 
  Country: None (occurrence: None)
  Receive Date: 20090722
  Receipt Date: 20090714
  Transmission Date: 20100115
  Serious: Yes (Hospitalization)
  Sender: FDA-Public Use
  Company Number: JP-AMGEN-US345479

PATIENT
  Sex: Female
  Weight: 43 kg

DRUGS (12)
  1. ENBREL [Suspect]
     Indication: RHEUMATOID ARTHRITIS
     Route: 058
     Dates: start: 20080829, end: 20081017
  2. ENBREL [Suspect]
  3. ENBREL [Suspect]
     Dosage: LYOPHILIZED: 25 MG ONCE WEEKLY
     Route: 058
     Dates: start: 20080710, end: 20080822
  4. PREDNISOLONE [Suspect]
     Indication: RHEUMATOID ARTHRITIS
     Route: 048
  5. MUCOSTA [Concomitant]
     Route: 048
  6. HERBESSER [Concomitant]
     Route: 048
  7. LOPRESSOR [Concomitant]
     Route: 048
  8. RIMATIL [Concomitant]
     Indication: RHEUMATOID ARTHRITIS
     Route: 048
  9. KLARICID [Concomitant]
     Route: 048
  10. CONSTAN [Concomitant]
     Route: 048
  11. FOSAMAX [Concomitant]
     Route: 048
  12. ONE-ALPHA [Concomitant]
     Route: 048

REACTIONS (1)
  - HERPES ZOSTER [None]
